FAERS Safety Report 6451129-8 (Version None)
Quarter: 2009Q4

REPORT INFORMATION
  Report Type: 
  Country: None (occurrence: None)
  Receive Date: 20091118
  Receipt Date: 20090624
  Transmission Date: 20100525
  Serious: Yes (Hospitalization)
  Sender: FDA-Public Use
  Company Number: 2009BI017353

PATIENT
  Sex: Female
  Weight: 73.7 kg

DRUGS (4)
  1. TYSABRI [Suspect]
     Indication: MULTIPLE SCLEROSIS
     Dosage: 300 MG;QM;IV
     Route: 042
     Dates: start: 20070901
  2. AVONEX [Concomitant]
  3. COPAXONE [Concomitant]
  4. REBIF [Concomitant]

REACTIONS (1)
  - DEPRESSION [None]
